FAERS Safety Report 4418617-7 (Version None)
Quarter: 2004Q3

REPORT INFORMATION
  Report Type: 
  Country: None (occurrence: None)
  Receive Date: 20040809
  Receipt Date: 20031212
  Transmission Date: 20050211
  Serious: No
  Sender: FDA-Public Use
  Company Number: US-GLAXOSMITHKLINE-A0442997A

PATIENT
  Age: 51 Year
  Sex: Female

DRUGS (6)
  1. PAXIL [Suspect]
     Route: 048
  2. TRICOR [Suspect]
  3. FOSAMAX [Concomitant]
  4. SYNTHROID [Concomitant]
  5. ARTHROTEC [Concomitant]
  6. ALLEGRA [Concomitant]

REACTIONS (2)
  - ALOPECIA [None]
  - SKIN IRRITATION [None]
